FAERS Safety Report 4937194-5 (Version None)
Quarter: 2006Q1

REPORT INFORMATION
  Report Type: 
  Country: None (occurrence: None)
  Receive Date: 20060307
  Receipt Date: 20060307
  Transmission Date: 20060701
  Serious: No
  Sender: FDA-Public Use
  Company Number: None

PATIENT
  Sex: Female
  Weight: 47.6277 kg

DRUGS (5)
  1. BONIVA [Suspect]
     Indication: OSTEOPOROSIS
     Dosage: 150 MG   1X/MONTH  PO
     Route: 048
     Dates: start: 20050822, end: 20060122
  2. BACLOFEN [Concomitant]
  3. IMITREX [Concomitant]
  4. EXCEDRIN [Concomitant]
  5. NEXIUM [Concomitant]

REACTIONS (1)
  - HEADACHE [None]
